FAERS Safety Report 12441121 (Version 4)
Quarter: 2016Q3

REPORT INFORMATION
  Report Type: Report from Study
  Country: US (occurrence: US)
  Receive Date: 20160607
  Receipt Date: 20160825
  Transmission Date: 20161109
  Serious: Yes (Hospitalization, Other)
  Sender: FDA-Public Use
  Company Number: PHHY2016US053741

PATIENT
  Age: 22 Year
  Sex: Male
  Weight: 38.28 kg

DRUGS (9)
  1. NPH INSULIN [Concomitant]
     Active Substance: INSULIN BEEF
     Indication: CYSTIC FIBROSIS RELATED DIABETES
     Dosage: 5 U, NIGHTLY
     Route: 058
     Dates: start: 20151210
  2. TWOCAL HN [Concomitant]
     Indication: UNDERWEIGHT
     Dosage: 4 CANS 9 TUBE NIGHTLY
     Route: 065
     Dates: start: 201410
  3. TOBI PODHALER [Suspect]
     Active Substance: TOBRAMYCIN
     Indication: CYSTIC FIBROSIS
     Dosage: UNK
     Route: 065
  4. CAYSTON [Suspect]
     Active Substance: AZTREONAM
     Indication: INFECTIVE PULMONARY EXACERBATION OF CYSTIC FIBROSIS
     Dosage: 75 MG, TID EVERY 28 DAYS
     Route: 055
  5. NOVOLOG [Concomitant]
     Active Substance: INSULIN ASPART
     Indication: CYSTIC FIBROSIS RELATED DIABETES
     Dosage: 1 UNIT PER 15 GRAM CARBOHYRATE
     Route: 058
     Dates: start: 201307
  6. SODIUM CHLORIDE. [Concomitant]
     Active Substance: SODIUM CHLORIDE
     Indication: CYSTIC FIBROSIS
     Dosage: 4 ML, BID
     Route: 055
     Dates: start: 20141010
  7. ZENPEP [Concomitant]
     Active Substance: PANCRELIPASE AMYLASE\PANCRELIPASE LIPASE\PANCRELIPASE PROTEASE
     Indication: PANCREATIC INSUFFICIENCY
     Dosage: (SLIDING SCALE, WITH FOOD)
     Route: 048
     Dates: start: 2010
  8. PULMOZYME [Concomitant]
     Active Substance: DORNASE ALFA
     Indication: CYSTIC FIBROSIS
     Dosage: 2.5 MG, QD
     Route: 055
     Dates: start: 1994
  9. ALBUTEROL. [Concomitant]
     Active Substance: ALBUTEROL
     Indication: CYSTIC FIBROSIS
     Dosage: 2 PUFFS, TID
     Route: 055
     Dates: start: 201602

REACTIONS (19)
  - Infective pulmonary exacerbation of cystic fibrosis [Recovered/Resolved]
  - Weight increased [Unknown]
  - Decreased appetite [Unknown]
  - Cough [Unknown]
  - Respiratory rate increased [Unknown]
  - Rales [Unknown]
  - Increased appetite [Unknown]
  - Blood creatinine decreased [Unknown]
  - Weight decreased [Unknown]
  - Upper respiratory tract infection [Recovered/Resolved]
  - Productive cough [Recovering/Resolving]
  - Pain [Unknown]
  - Asthenia [Unknown]
  - Sputum increased [Unknown]
  - Haemoptysis [Unknown]
  - Oropharyngeal pain [Unknown]
  - Infective pulmonary exacerbation of cystic fibrosis [Recovered/Resolved]
  - Cough [Recovering/Resolving]
  - Pyrexia [Unknown]

NARRATIVE: CASE EVENT DATE: 20160107
